FAERS Safety Report 9484393 (Version 2)
Quarter: 2013Q3

REPORT INFORMATION
  Report Type: Spontaneous
  Country: CA (occurrence: CA)
  Receive Date: 20130828
  Receipt Date: 20130828
  Transmission Date: 20140515
  Serious: Yes (Hospitalization)
  Sender: FDA-Public Use
  Company Number: CA-AMGEN-KDL306858

PATIENT
  Age: 59 Year
  Sex: Female

DRUGS (4)
  1. ENBREL [Suspect]
     Indication: RHEUMATOID ARTHRITIS
     Dosage: UNK UNK, QWK
     Route: 065
     Dates: start: 20050601
  2. METHOTREXATE [Concomitant]
     Dosage: UNK UNK, UNK
     Route: 058
  3. HYDROXYCHLOROQUINE SULFATE [Concomitant]
     Dosage: UNK UNK, UNK
  4. ACTONEL [Concomitant]
     Dosage: UNK UNK, UNK

REACTIONS (3)
  - Carcinoid tumour of the gastrointestinal tract [Recovered/Resolved]
  - Metastatic lymphoma [Recovered/Resolved]
  - Injection site bruising [Unknown]
